FAERS Safety Report 9347000 (Version 1)
Quarter: 2013Q2

REPORT INFORMATION
  Report Type: Spontaneous
  Country: IT (occurrence: IT)
  Receive Date: 20130613
  Receipt Date: 20130613
  Transmission Date: 20140414
  Serious: Yes (Hospitalization)
  Sender: FDA-Public Use
  Company Number: PHHY2012IT071822

PATIENT
  Age: 40 Year
  Sex: Female

DRUGS (9)
  1. OLANZAPINE [Suspect]
     Dosage: 10 MG, UNK
     Route: 048
  2. HALOPERIDOL [Suspect]
     Indication: BIPOLAR I DISORDER
  3. ARIPIPRAZOLE [Suspect]
     Indication: BIPOLAR I DISORDER
     Dosage: 5 MG, PER DAY
  4. ARIPIPRAZOLE [Suspect]
     Dosage: 20 MG, UNK
  5. CHLORPROMAZINE [Suspect]
     Indication: BIPOLAR I DISORDER
     Dosage: 100 MG, PER DAY
  6. PROMAZINE [Suspect]
     Indication: BIPOLAR I DISORDER
     Dosage: 100 MG, PER DAY
     Route: 030
  7. LITHIUM CHLORIDE [Concomitant]
     Indication: AFFECTIVE DISORDER
  8. BUPROPION [Concomitant]
     Dosage: 150 MG, QD
  9. CLOMIPRAMINE [Concomitant]
     Dosage: 75 MG, QD

REACTIONS (26)
  - Neuroleptic malignant syndrome [Recovered/Resolved]
  - Rhabdomyolysis [Recovered/Resolved]
  - Pyrexia [Recovered/Resolved]
  - Leukocytosis [Recovered/Resolved]
  - Hypokalaemia [Recovered/Resolved]
  - Catatonia [Recovered/Resolved]
  - Psychomotor retardation [Recovered/Resolved]
  - Psychomotor hyperactivity [Recovered/Resolved]
  - Mutism [Recovered/Resolved]
  - Disinhibition [Recovered/Resolved]
  - Confusional state [Recovered/Resolved]
  - Negativism [Recovered/Resolved]
  - Stereotypy [Recovered/Resolved]
  - Grimacing [Recovered/Resolved]
  - Urinary retention [Recovered/Resolved]
  - Hypertonia [Recovered/Resolved]
  - Autonomic nervous system imbalance [Recovered/Resolved]
  - Tachycardia [Recovered/Resolved]
  - Tachypnoea [Recovered/Resolved]
  - Hyperhidrosis [Recovered/Resolved]
  - Stupor [Recovered/Resolved]
  - Agitation [Recovered/Resolved]
  - Disorientation [Recovered/Resolved]
  - Neutrophilia [Recovered/Resolved]
  - Muscle rigidity [Recovered/Resolved]
  - Altered state of consciousness [Recovered/Resolved]
